FAERS Safety Report 6801500-7 (Version None)
Quarter: 2010Q2

REPORT INFORMATION
  Report Type: 
  Country: None (occurrence: None)
  Receive Date: 20100614
  Receipt Date: 20100602
  Transmission Date: 20101027
  Serious: Yes (Life-Threatening, Hospitalization)
  Sender: FDA-Public Use
  Company Number: 1-22856578

PATIENT
  Age: 26 Year
  Sex: Female

DRUGS (3)
  1. AMPHETAMINE SALTS TABLET 5MG [Suspect]
     Indication: POISONING DELIBERATE
  2. HEROIN [Suspect]
     Indication: POISONING DELIBERATE
  3. INSULIN (STRENGTH AND MANUFACUTERE UNKNOWN) [Suspect]
     Indication: POISONING DELIBERATE

REACTIONS (12)
  - BODY TEMPERATURE DECREASED [None]
  - CARDIAC ARREST [None]
  - DRUG TOXICITY [None]
  - EJECTION FRACTION DECREASED [None]
  - ELECTROCARDIOGRAM ST SEGMENT ABNORMAL [None]
  - HAEMODYNAMIC INSTABILITY [None]
  - HYPOGLYCAEMIA [None]
  - MYDRIASIS [None]
  - PLEURAL EFFUSION [None]
  - PNEUMONIA ASPIRATION [None]
  - RESTLESSNESS [None]
  - SUICIDE ATTEMPT [None]
